FAERS Safety Report 7235662-7 (Version None)
Quarter: 2011Q1

REPORT INFORMATION
  Report Type: 
  Country: None (occurrence: None)
  Receive Date: 20110120
  Receipt Date: 20110113
  Transmission Date: 20110831
  Serious: Yes (Other)
  Sender: FDA-Public Use
  Company Number: PHHY2011NL03382

PATIENT
  Sex: Female

DRUGS (2)
  1. SANDOSTATIN LAR [Suspect]
     Indication: NEUROENDOCRINE TUMOUR
     Dosage: 30 MG, UNK
     Route: 030
     Dates: start: 20100506
  2. PARACETAMOL [Concomitant]
     Dosage: 1000 MG, 4DD1

REACTIONS (4)
  - VOMITING [None]
  - NAUSEA [None]
  - HOT FLUSH [None]
  - DIARRHOEA [None]
